FAERS Safety Report 8591202-1 (Version None)
Quarter: 2012Q3

REPORT INFORMATION
  Report Type: 
  Country: None (occurrence: None)
  Receive Date: 20120813
  Receipt Date: 20120802
  Transmission Date: 20120928
  Serious: Yes (Disabling)
  Sender: FDA-Public Use
  Company Number: DE-ABBOTT-12P-062-0967654-00

PATIENT
  Age: 82 Year
  Sex: Male

DRUGS (2)
  1. TROSPIUM CHLORIDE [Concomitant]
     Indication: PRODUCT USED FOR UNKNOWN INDICATION
     Dosage: 1-0-1
     Route: 065
     Dates: start: 19900101
  2. LEUPROLIDE ACETATE [Suspect]
     Indication: PROSTATE CANCER
     Route: 058
     Dates: start: 20031104

REACTIONS (1)
  - PARKINSON'S DISEASE [None]
